FAERS Safety Report 7093156-6 (Version None)
Quarter: 2010Q4

REPORT INFORMATION
  Report Type: 
  Country: None (occurrence: None)
  Receive Date: 20101110
  Receipt Date: 20081126
  Transmission Date: 20110411
  Serious: Yes (Hospitalization)
  Sender: FDA-Public Use
  Company Number: US-KINGPHARMUSA00001-K200801357

PATIENT
  Age: 68 Year
  Sex: Female
  Weight: 61.224 kg

DRUGS (3)
  1. SEPTRA [Suspect]
     Indication: GASTROINTESTINAL INFECTION
     Dosage: UNK
     Route: 048
     Dates: start: 20081101, end: 20081101
  2. ATENOLOL [Concomitant]
     Indication: HYPERTENSION
     Dosage: UNK
  3. LISINOPRIL [Concomitant]
     Indication: HYPERTENSION
     Dosage: UNK

REACTIONS (4)
  - HYPERSENSITIVITY [None]
  - LEUKOPENIA [None]
  - RASH [None]
  - THROMBOCYTOPENIA [None]
